FAERS Safety Report 14277945 (Version 3)
Quarter: 2020Q1

REPORT INFORMATION
  Report Type: Spontaneous
  Country: US (occurrence: US)
  Receive Date: 20171212
  Receipt Date: 20200115
  Transmission Date: 20200409
  Serious: No
  Sender: FDA-Public Use
  Company Number: US-BAUSCH-BL-2017-028694

PATIENT
  Sex: Female

DRUGS (1)
  1. SYPRINE [Suspect]
     Active Substance: TRIENTINE HYDROCHLORIDE
     Indication: PRODUCT USED FOR UNKNOWN INDICATION
     Route: 048

REACTIONS (6)
  - Blood cholesterol increased [Unknown]
  - Blood triglycerides increased [Unknown]
  - Product dose omission [Unknown]
  - Abdominal tenderness [Unknown]
  - Abdominal pain [Unknown]
  - Memory impairment [Unknown]
